FAERS Safety Report 7447221-1 (Version None)
Quarter: 2011Q2

REPORT INFORMATION
  Report Type: 
  Country: None (occurrence: None)
  Receive Date: 20110429
  Receipt Date: 20101213
  Transmission Date: 20111010
  Serious: No
  Sender: FDA-Public Use
  Company Number: US-ASTRAZENECA-2010SE58944

PATIENT
  Age: 51 Year
  Sex: Female
  Weight: 50.8 kg

DRUGS (5)
  1. NEXIUM [Suspect]
     Indication: ULCER HAEMORRHAGE
     Route: 048
     Dates: start: 20080101
  2. PREVACID OTC [Concomitant]
  3. OTHER MULTIPLE MEDS [Concomitant]
  4. NEXIUM [Suspect]
     Indication: GASTROOESOPHAGEAL REFLUX DISEASE
     Route: 048
     Dates: start: 20080101
  5. ZANTAC OTC [Concomitant]

REACTIONS (2)
  - GASTROOESOPHAGEAL REFLUX DISEASE [None]
  - DRUG DOSE OMISSION [None]
